FAERS Safety Report 8326750-2 (Version None)
Quarter: 2012Q2

REPORT INFORMATION
  Report Type: 
  Country: None (occurrence: None)
  Receive Date: 20120501
  Receipt Date: 20120425
  Transmission Date: 20120825
  Serious: Yes (Other)
  Sender: FDA-Public Use
  Company Number: PHHY2012IT035668

PATIENT
  Sex: Male

DRUGS (2)
  1. AMOXICILLIN AND CLAVULANATE POTASSIUM [Suspect]
     Indication: IMPETIGO
     Dosage: 8 ML, DAILY
     Route: 048
     Dates: start: 20120403, end: 20120407
  2. XYZAL [Concomitant]
     Dosage: 10 ORAL POSOLOGIC UNITS

REACTIONS (2)
  - ERYTHEMA [None]
  - SKIN EXFOLIATION [None]
